FAERS Safety Report 10651570 (Version 3)
Quarter: 2014Q4

REPORT INFORMATION
  Report Type: Report from Study
  Country: FR (occurrence: FR)
  Receive Date: 20141215
  Receipt Date: 20141229
  Transmission Date: 20150529
  Serious: Yes (Death, Hospitalization)
  Sender: FDA-Public Use
  Company Number: FR-009507513-1408FRA006120

PATIENT
  Age: 64 Year
  Sex: Male
  Weight: 70 kg

DRUGS (16)
  1. PEMBROLIZUMAB. [Suspect]
     Active Substance: PEMBROLIZUMAB
     Indication: NEOPLASM
     Dosage: 10 MG/KG, QOW
     Route: 042
     Dates: start: 20140513, end: 20140708
  2. PEMBROLIZUMAB. [Suspect]
     Active Substance: PEMBROLIZUMAB
     Dosage: 10 MG/KG, QOW
     Route: 042
     Dates: start: 20140813, end: 20140827
  3. OXYCONTIN [Concomitant]
     Active Substance: OXYCODONE HYDROCHLORIDE
     Indication: PAIN
     Dosage: 20 MG, BID
     Route: 048
     Dates: start: 20140429, end: 20140807
  4. SODIUM CHLORIDE. [Concomitant]
     Active Substance: SODIUM CHLORIDE
     Indication: HYPERCALCAEMIA
     Dosage: TOTAL DAILY DOSE: 1 LITER, AS NEEDED (PRN).
     Route: 042
     Dates: start: 20140604, end: 20140917
  5. CANDESARTAN CILEXETIL. [Concomitant]
     Active Substance: CANDESARTAN CILEXETIL
     Indication: HYPERTENSION
     Dosage: 16 MG, QD
     Route: 048
     Dates: start: 20140514, end: 20140917
  6. ATARAX [Concomitant]
     Active Substance: HYDROXYZINE\HYDROXYZINE HYDROCHLORIDE
     Indication: INSOMNIA
     Dosage: 1 TABLET DAILY DOSE, PRN
     Route: 048
     Dates: start: 20140513, end: 20140917
  7. OXYNORM [Concomitant]
     Active Substance: OXYCODONE HYDROCHLORIDE
     Indication: PAIN
     Dosage: UNK UNK, PRN
     Route: 048
     Dates: start: 20140429, end: 20140807
  8. INEGY [Concomitant]
     Active Substance: EZETIMIBE\SIMVASTATIN
     Indication: HYPERCHOLESTEROLAEMIA
     Dosage: 40 MG, QD
     Route: 048
     Dates: start: 20121220, end: 20140917
  9. LYRICA [Concomitant]
     Active Substance: PREGABALIN
     Indication: PAIN
     Dosage: 100 MG, BID
     Route: 048
     Dates: start: 20140624, end: 20140917
  10. SODIUM CHLORIDE. [Concomitant]
     Active Substance: SODIUM CHLORIDE
     Indication: HYPERCALCAEMIA
     Dosage: UNK
     Dates: start: 20140514
  11. PEMBROLIZUMAB. [Suspect]
     Active Substance: PEMBROLIZUMAB
     Dosage: 10 MG/KG, QOW
     Route: 042
     Dates: start: 20140723, end: 20140723
  12. ACETAMINOPHEN. [Concomitant]
     Active Substance: ACETAMINOPHEN
     Indication: PAIN
     Dosage: 3G, DAILY DOSE,PRN
     Route: 048
     Dates: start: 20140429, end: 20140917
  13. ESIDREX [Concomitant]
     Active Substance: HYDROCHLOROTHIAZIDE
     Indication: HYPERTENSION
     Dosage: 25 MG, BID
     Route: 048
     Dates: start: 20121220, end: 20140917
  14. DIGOXIN. [Concomitant]
     Active Substance: DIGOXIN
     Indication: CARDIAC VALVE DISEASE
     Dosage: 0.25 MG, QD
     Route: 048
     Dates: start: 20121220, end: 20140917
  15. COUMADIN [Concomitant]
     Active Substance: WARFARIN SODIUM
     Indication: CARDIAC VALVE DISEASE
     Dosage: 2 MG, QD
     Route: 048
     Dates: start: 20121220, end: 20140917
  16. ANAFRANIL [Concomitant]
     Active Substance: CLOMIPRAMINE HYDROCHLORIDE
     Indication: PAIN
     Dosage: 25 MG, QD
     Route: 048
     Dates: start: 20140730, end: 20140917

REACTIONS (1)
  - Malignant neoplasm progression [Fatal]

NARRATIVE: CASE EVENT DATE: 20140805
